FAERS Safety Report 5188094-X (Version None)
Quarter: 2006Q4

REPORT INFORMATION
  Report Type: 
  Country: None (occurrence: None)
  Receive Date: 20061214
  Receipt Date: 20061206
  Transmission Date: 20070319
  Serious: Yes (Hospitalization)
  Sender: FDA-Public Use
  Company Number: FRWYE756106DEC06

PATIENT
  Age: 76 Year
  Sex: Female

DRUGS (15)
  1. EFFEXOR XR [Suspect]
     Dosage: 75 MG 1X PER 1 DAY ORAL
     Route: 048
     Dates: end: 20060810
  2. ART 50 (DIACEREIN, , 0) [Suspect]
     Dosage: 50 MG 1X PER 1 DAY ORAL
     Route: 048
     Dates: end: 20060809
  3. CORDARONE [Suspect]
     Dosage: 200 MG 1X PER 1 DAY ORAL
     Route: 048
     Dates: end: 20060811
  4. ACETAMINOPHEN [Suspect]
     Dosage: 2 G TOTAL DAILY ORAL
     Route: 048
     Dates: end: 20060809
  5. KARDEGIC (ACETYLSALICYLATE LYSINE, ,0) [Suspect]
     Dosage: 75 MG 1X PER 1 DAY ORAL
     Route: 048
     Dates: end: 20060811
  6. METFORMIN (METFORMIN, , 0) [Suspect]
     Dosage: 850 MG 1X PER 1 DAY ORAL
     Route: 048
     Dates: end: 20060809
  7. MYSOLINE [Suspect]
     Dosage: 250 MG 1X PER 1 DAY ORAL
     Route: 048
     Dates: end: 20060811
  8. REQUIP [Suspect]
     Dosage: 1 TABLET 3X PER 1 DAY ORAL
     Route: 048
     Dates: start: 20060816
  9. REQUIP [Suspect]
     Dosage: 1 MG 3X PER 1 DAY ORAL
     Route: 048
     Dates: end: 20060811
  10. SINEMET [Suspect]
     Dosage: 50 MG CARBIDOPA/200 MG LEVODOPA, 3 TIMES DAILY ORAL
     Route: 048
     Dates: start: 20060816
  11. SINEMET [Suspect]
     Dosage: 50 MG CARBIDOPA/200 MG LEVODOPA, 3 TIMES DAILY ORAL
     Route: 048
     Dates: end: 20060811
  12. TENORMIN [Suspect]
     Dosage: 150 MG TOTAL DAILY ORAL
     Route: 048
     Dates: end: 20060811
  13. TENORMIN [Suspect]
     Dosage: ORAL
     Route: 048
     Dates: start: 20060812
  14. ZOCOR [Suspect]
     Dosage: 40 MG 1X PER 1 DAY ORAL
     Route: 048
     Dates: end: 20060809
  15. ISOSORBIDE DINITRATE [Concomitant]

REACTIONS (6)
  - CONDITION AGGRAVATED [None]
  - CYTOLYTIC HEPATITIS [None]
  - DYSPNOEA [None]
  - GENERAL PHYSICAL HEALTH DETERIORATION [None]
  - HYPONATRAEMIA [None]
  - RENAL FAILURE [None]
